FAERS Safety Report 19716795 (Version 1)
Quarter: 2021Q3

REPORT INFORMATION
  Report Type: Spontaneous
  Country: US (occurrence: US)
  Receive Date: 20210819
  Receipt Date: 20210819
  Transmission Date: 20211014
  Serious: No
  Sender: FDA-Public Use
  Company Number: US-B.I. PHARMACEUTICALS,INC./RIDGEFIELD-2021-BI-121821

PATIENT
  Age: 69 Year
  Sex: Female
  Weight: 95 kg

DRUGS (2)
  1. MOBIC [Suspect]
     Active Substance: MELOXICAM
     Indication: ARTHRITIS
  2. COVID?19 VACCINE [Concomitant]
     Indication: COVID-19
     Dosage: LEFT ARM, DOSE 1 18FEB2021, DOSE 2 18MAR2021
     Dates: start: 20210218, end: 20210318

REACTIONS (5)
  - Musculoskeletal stiffness [Unknown]
  - Rash [Unknown]
  - Neck pain [Unknown]
  - Peripheral swelling [Unknown]
  - Arthralgia [Unknown]

NARRATIVE: CASE EVENT DATE: 202104
